FAERS Safety Report 10180788 (Version 1)
Quarter: 2014Q2

REPORT INFORMATION
  Report Type: Spontaneous
  Country: US (occurrence: US)
  Receive Date: 20140519
  Receipt Date: 20140519
  Transmission Date: 20141212
  Serious: No
  Sender: FDA-Public Use
  Company Number: US-AMGEN INC.-USASP2014015110

PATIENT
  Age: 64 Year
  Sex: Female

DRUGS (5)
  1. PROLIA [Suspect]
     Indication: OSTEOPOROSIS POSTMENOPAUSAL
     Dosage: 60 MG/ML, UNK
     Route: 065
  2. LEVOTHYROXINE                      /00068002/ [Concomitant]
     Dosage: 88 MUG, UNK
  3. VITAMIN D                          /00107901/ [Concomitant]
  4. CALCIUM [Concomitant]
  5. OMEGA 3                            /01334101/ [Concomitant]

REACTIONS (4)
  - Oral mucosal blistering [Not Recovered/Not Resolved]
  - Eating disorder [Unknown]
  - Oral discomfort [Unknown]
  - Oral pain [Unknown]
